APPROVED DRUG PRODUCT: LEVOCETIRIZINE DIHYDROCHLORIDE
Active Ingredient: LEVOCETIRIZINE DIHYDROCHLORIDE
Strength: 5MG
Dosage Form/Route: TABLET;ORAL
Application: A204626 | Product #001
Applicant: IPCA LABORATORIES LTD
Approved: May 6, 2024 | RLD: No | RS: No | Type: DISCN